FAERS Safety Report 6282560-1 (Version None)
Quarter: 2009Q3

REPORT INFORMATION
  Report Type: 
  Country: None (occurrence: None)
  Receive Date: 20090724
  Receipt Date: 20090716
  Transmission Date: 20100115
  Serious: Yes (Other)
  Sender: FDA-Public Use
  Company Number: JP-JNJFOC-20090706053

PATIENT

DRUGS (2)
  1. RISPERDAL [Suspect]
     Indication: DRUG USE FOR UNKNOWN INDICATION
     Route: 048
  2. UNKNOWN MEDICATION [Concomitant]
     Route: 065

REACTIONS (2)
  - CEREBROVASCULAR DISORDER [None]
  - TARDIVE DYSKINESIA [None]
